FAERS Safety Report 25750093 (Version 1)
Quarter: 2025Q3

REPORT INFORMATION
  Report Type: Spontaneous
  Country: US (occurrence: None)
  Receive Date: 20250830
  Receipt Date: 20250830
  Transmission Date: 20251020
  Serious: Yes (Other)
  Sender: FDA-CTU
  Company Number: None

PATIENT
  Age: 65 Year
  Sex: Female
  Weight: 99.9 kg

DRUGS (16)
  1. MOUNJARO [Suspect]
     Active Substance: TIRZEPATIDE
     Indication: Type 2 diabetes mellitus
     Dates: start: 20231001, end: 20250830
  2. OLMESARTAN [Concomitant]
     Active Substance: OLMESARTAN
  3. Medoxomil Tabs [Concomitant]
  4. Carvedilol 12.5 x 2 am/pm [Concomitant]
  5. Crestor 10mg PM [Concomitant]
  6. Klonopin .25 x1 PM [Concomitant]
  7. Metformin 500 mg tab x2 AM/PM [Concomitant]
  8. Latanoprost 0.005% Opth Sol 2.5ML(glaucoma) [Concomitant]
  9. Brimonidine Tart OP 10 ML 0.2% eye drop [Concomitant]
  10. Vitamin B12 1000 mcg [Concomitant]
  11. Vitamin D 5000 iu x1 [Concomitant]
  12. Amlodipine Besylate Tabs 5 MG [Concomitant]
  13. Clonodine .01 mg as needed [Concomitant]
  14. Furosemide 40 as needed [Concomitant]
  15. ZOFRAN [Concomitant]
     Active Substance: ONDANSETRON HYDROCHLORIDE
  16. Ondansetron 4mg 8 hrs as needed [Concomitant]

REACTIONS (2)
  - Migraine [None]
  - Hypertensive crisis [None]

NARRATIVE: CASE EVENT DATE: 20250401
